FAERS Safety Report 9815618 (Version 1)
Quarter: 2014Q1

REPORT INFORMATION
  Report Type: Spontaneous
  Country: US (occurrence: US)
  Receive Date: 20140114
  Receipt Date: 20140114
  Transmission Date: 20141002
  Serious: No
  Sender: FDA-Public Use
  Company Number: US-009507513-1401USA003499

PATIENT
  Age: 48 Year
  Sex: Female

DRUGS (3)
  1. CLARITIN-D-24 [Suspect]
     Indication: UPPER RESPIRATORY TRACT CONGESTION
     Dosage: UNK, UNKNOWN
     Route: 048
  2. CLARITIN-D-24 [Suspect]
     Indication: SINUS HEADACHE
  3. CLARITIN-D-24 [Suspect]
     Indication: MALAISE

REACTIONS (1)
  - Insomnia [Unknown]
